FAERS Safety Report 7448096-7 (Version None)
Quarter: 2011Q2

REPORT INFORMATION
  Report Type: 
  Country: None (occurrence: None)
  Receive Date: 20110429
  Receipt Date: 20100222
  Transmission Date: 20111010
  Serious: No
  Sender: FDA-Public Use
  Company Number: US-ASTRAZENECA-2010SE07868

PATIENT
  Age: 103 Year
  Sex: Female
  Weight: 77.1 kg

DRUGS (6)
  1. ONE DAY VITAMINS [Concomitant]
  2. NEXIUM [Suspect]
     Indication: GASTROOESOPHAGEAL REFLUX DISEASE
     Route: 048
     Dates: start: 20100201
  3. PRILOSEC [Suspect]
     Route: 048
  4. ZOLOFT [Concomitant]
  5. NEXIUM [Suspect]
     Route: 048
     Dates: start: 20100201
  6. CALCIUM D [Concomitant]

REACTIONS (1)
  - REGURGITATION [None]
